FAERS Safety Report 19143168 (Version 1)
Quarter: 2021Q2

REPORT INFORMATION
  Report Type: Spontaneous
  Country: US (occurrence: US)
  Receive Date: 20210416
  Receipt Date: 20210416
  Transmission Date: 20210717
  Serious: No
  Sender: FDA-Public Use
  Company Number: US-TERSERA THERAPEUTICS LLC-2020TRS003858

PATIENT

DRUGS (1)
  1. XERMELO [Suspect]
     Active Substance: TELOTRISTAT ETHYL
     Indication: CARCINOID SYNDROME
     Dosage: 125 MG, BID
     Route: 048
     Dates: start: 20170512

REACTIONS (4)
  - Off label use [Unknown]
  - Dehydration [Unknown]
  - Therapy interrupted [Unknown]
  - COVID-19 [Unknown]

NARRATIVE: CASE EVENT DATE: 20170512
